FAERS Safety Report 9671669 (Version 1)
Quarter: 2013Q4

REPORT INFORMATION
  Report Type: Spontaneous
  Country: US (occurrence: US)
  Receive Date: 20131106
  Receipt Date: 20131106
  Transmission Date: 20140711
  Serious: No
  Sender: FDA-Public Use
  Company Number: US-PFIZER INC-2013313069

PATIENT
  Sex: Female

DRUGS (2)
  1. TYGACIL [Suspect]
     Indication: ANTIBIOTIC THERAPY
     Dosage: UNK
  2. TYGACIL [Suspect]
     Indication: HEPATIC INFECTION

REACTIONS (3)
  - Diarrhoea [Unknown]
  - Dysstasia [Unknown]
  - Asthenia [Unknown]
